FAERS Safety Report 15696711 (Version 1)
Quarter: 2018Q4

REPORT INFORMATION
  Report Type: Report from Study
  Country: US (occurrence: US)
  Receive Date: 20181206
  Receipt Date: 20181206
  Transmission Date: 20190205
  Serious: Yes (Hospitalization)
  Sender: FDA-Public Use
  Company Number: US-GILEAD-2018-0378155

PATIENT
  Age: 24 Year
  Sex: Male

DRUGS (7)
  1. TOBI [TOBRAMYCIN SULFATE] [Concomitant]
  2. PULMOZYME [Concomitant]
     Active Substance: DORNASE ALFA
  3. URSODIOL. [Concomitant]
     Active Substance: URSODIOL
  4. VFEND [Concomitant]
     Active Substance: VORICONAZOLE
  5. AZTREONAM LYSINE [Suspect]
     Active Substance: AZTREONAM LYSINE
     Indication: CYSTIC FIBROSIS
     Dosage: 75 MG, TID
     Route: 055
  6. ZYRTEC [Concomitant]
     Active Substance: CETIRIZINE HYDROCHLORIDE
  7. ZENPEP [Suspect]
     Active Substance: PANCRELIPASE AMYLASE\PANCRELIPASE LIPASE\PANCRELIPASE PROTEASE
     Indication: CYSTIC FIBROSIS
     Dosage: TK 6 CAPS PO WITH MEALS, 4 CAPS WITH SNACKS, 6 CAPS B4 FEEDS START AT PM AND THEN 6 CAPS IN THE A
     Route: 065
     Dates: start: 20150417

REACTIONS (1)
  - Lung disorder [Unknown]

NARRATIVE: CASE EVENT DATE: 20181114
